FAERS Safety Report 5850664-0 (Version None)
Quarter: 2008Q3

REPORT INFORMATION
  Report Type: 
  Country: None (occurrence: None)
  Receive Date: 20080820
  Receipt Date: 20080806
  Transmission Date: 20090109
  Serious: Yes (Other)
  Sender: FDA-Public Use
  Company Number: GB-BAYER-200824537GPV

PATIENT
  Age: 38 Year
  Sex: Female

DRUGS (12)
  1. NAPROXEN [Suspect]
     Indication: MIGRAINE
     Route: 065
  2. ACYCLOVIR [Suspect]
     Indication: ANTIVIRAL PROPHYLAXIS
     Route: 065
  3. CITALOPRAM HYDROBROMIDE [Suspect]
     Indication: POST-TRAUMATIC STRESS DISORDER
     Route: 065
  4. VITAMIN B COMPLEX CAP [Suspect]
     Indication: VITAMIN SUPPLEMENTATION
     Route: 065
  5. FLUCONAZOLE [Suspect]
     Indication: ANTIFUNGAL PROPHYLAXIS
     Route: 065
  6. FUZEON [Suspect]
     Indication: HIV INFECTION
     Route: 058
     Dates: start: 20050707
  7. TMC125 [Suspect]
     Indication: HIV INFECTION
     Route: 048
     Dates: start: 20050707, end: 20060322
  8. KALETRA [Suspect]
     Indication: HIV INFECTION
     Route: 048
     Dates: start: 20050707
  9. CALCIUM [Suspect]
     Indication: MINERAL SUPPLEMENTATION
     Route: 065
  10. VIREAD [Suspect]
     Indication: HIV INFECTION
     Route: 048
     Dates: start: 20050707
  11. METHADONE HYDROCHLORIDE [Suspect]
     Indication: NEUROPATHY PERIPHERAL
     Route: 065
  12. VITAMIN TAB [Suspect]
     Indication: VITAMIN SUPPLEMENTATION
     Route: 065

REACTIONS (1)
  - ABORTION SPONTANEOUS [None]
